FAERS Safety Report 9666387 (Version 2)
Quarter: 2013Q4

REPORT INFORMATION
  Report Type: Spontaneous
  Country: JP (occurrence: JP)
  Receive Date: 20131104
  Receipt Date: 20131230
  Transmission Date: 20140711
  Serious: Yes (Hospitalization)
  Sender: FDA-Public Use
  Company Number: JP-TAKEDA-2013TEU001838

PATIENT
  Age: 67 Year
  Sex: Female

DRUGS (7)
  1. TACHOSIL [Suspect]
     Indication: PROPHYLAXIS
     Dosage: 1SHEET /1DAY
     Dates: start: 20130304, end: 20130304
  2. DEPAS [Concomitant]
     Indication: INSOMNIA
     Dosage: 0.5 MG, QD
     Route: 048
  3. GLIMEPIRIDE [Concomitant]
     Indication: DIABETES MELLITUS
     Dosage: 1 MG, QD
     Route: 048
  4. GLACTIV [Concomitant]
     Indication: DIABETES MELLITUS
     Dosage: 50 MG, QD
  5. ATORVASTATIN [Concomitant]
     Indication: HYPERLIPIDAEMIA
     Dosage: 5 MG, QD
     Route: 048
  6. WYSTAL [Concomitant]
     Indication: ANTIBIOTIC PROPHYLAXIS
     Dosage: 1 G, BID
     Route: 042
     Dates: start: 20130304, end: 20130306
  7. FAMOTIDINE [Concomitant]
     Indication: PROPHYLAXIS
     Dosage: 20 MG, BID
     Route: 042
     Dates: start: 20130304, end: 20130311

REACTIONS (2)
  - Abdominal abscess [Recovered/Resolved]
  - Post procedural bile leak [Recovered/Resolved]
